FAERS Safety Report 16571942 (Version 1)
Quarter: 2019Q3

REPORT INFORMATION
  Report Type: Report from Study
  Country: GB (occurrence: GB)
  Receive Date: 20190715
  Receipt Date: 20190715
  Transmission Date: 20191004
  Serious: Yes (Other)
  Sender: FDA-Public Use
  Company Number: GB-BRISTOL-MYERS SQUIBB COMPANY-BMS-2016-082714

PATIENT
  Sex: Female

DRUGS (1)
  1. ABATACEPT [Suspect]
     Active Substance: ABATACEPT
     Indication: RHEUMATOID ARTHRITIS
     Dosage: 125 MG, QWK
     Route: 058
     Dates: start: 20140212

REACTIONS (12)
  - Pain [Unknown]
  - Dehydration [Unknown]
  - Infection [Unknown]
  - Product storage error [Unknown]
  - Fatigue [Unknown]
  - Arthropathy [Unknown]
  - Tooth disorder [Unknown]
  - Gastroenteritis norovirus [Unknown]
  - Malaise [Unknown]
  - Cerebrovascular accident [Unknown]
  - Oral infection [Unknown]
  - Asthenia [Unknown]
